FAERS Safety Report 9288455 (Version 3)
Quarter: 2013Q2

REPORT INFORMATION
  Report Type: Spontaneous
  Country: US (occurrence: US)
  Receive Date: 20130514
  Receipt Date: 20130606
  Transmission Date: 20140414
  Serious: Yes (Other)
  Sender: FDA-Public Use
  Company Number: US-PFIZER INC-2013144620

PATIENT
  Age: 57 Year
  Sex: Female
  Weight: 132 kg

DRUGS (5)
  1. GEODON [Suspect]
     Indication: DELUSION
     Dosage: TWO CAPSULES OF 40MG ORALLY AT NIGHT AND ONE CAPSULE OF 40MG IN THE MORNING
     Route: 048
     Dates: end: 201303
  2. LUVOX [Concomitant]
     Indication: MAJOR DEPRESSION
     Dosage: UNK
  3. ANAFRANIL [Concomitant]
     Indication: MAJOR DEPRESSION
     Dosage: UNK
  4. PRAVASTATIN [Concomitant]
     Indication: BLOOD CHOLESTEROL INCREASED
     Dosage: UNK
  5. HYDROCHLOROTHIAZIDE, LISINOPRIL [Concomitant]
     Indication: HYPERTENSION
     Dosage: UNK

REACTIONS (8)
  - Thinking abnormal [Unknown]
  - Delusion [Unknown]
  - Paranoia [Unknown]
  - Personality disorder [Unknown]
  - Feeling abnormal [Unknown]
  - Feeling abnormal [Unknown]
  - Mental disorder [Unknown]
  - Weight decreased [Unknown]
